FAERS Safety Report 9467194 (Version 1)
Quarter: 2013Q3

REPORT INFORMATION
  Report Type: Spontaneous
  Country: IN (occurrence: IN)
  Receive Date: 20130821
  Receipt Date: 20130821
  Transmission Date: 20140515
  Serious: Yes (Other)
  Sender: FDA-Public Use
  Company Number: PHHY2013IN087730

PATIENT
  Age: 55 Year
  Sex: Male

DRUGS (5)
  1. FLUOROURACIL [Suspect]
     Indication: COLON CANCER
     Dosage: 400 MG/M2, OVER 2-4 MINUTES
     Route: 042
  2. FLUOROURACIL [Suspect]
     Dosage: 600 MG/M2, 22 HOUR INFUSION
  3. OXALIPLATIN [Suspect]
     Indication: COLON CANCER
     Dosage: 85 MG/M2, UNK
     Route: 042
  4. LEUCOVORIN [Concomitant]
     Indication: COLON CANCER
     Dosage: 200 MG/M2, OVER 120 MINUTES
     Route: 042
  5. LEUCOVORIN [Concomitant]
     Dosage: 200 MG/M2, OVER 120 MINUTES
     Route: 042

REACTIONS (6)
  - Leukoencephalopathy [Recovering/Resolving]
  - Grand mal convulsion [Recovering/Resolving]
  - Ataxia [Recovered/Resolved]
  - Dysarthria [Unknown]
  - Gait disturbance [Recovered/Resolved]
  - Fall [Unknown]
